FAERS Safety Report 5782554-6 (Version None)
Quarter: 2008Q2

REPORT INFORMATION
  Report Type: 
  Country: None (occurrence: None)
  Receive Date: 20080623
  Receipt Date: 20080611
  Transmission Date: 20081010
  Serious: Yes (Life-Threatening, Other)
  Sender: FDA-Public Use
  Company Number: CA-PFIZER INC-2008049721

PATIENT
  Age: 68 Year
  Sex: Female

DRUGS (3)
  1. CHANTIX [Suspect]
  2. CALCIUM [Concomitant]
  3. VITAMIN D [Concomitant]

REACTIONS (9)
  - ABNORMAL BEHAVIOUR [None]
  - DECREASED APPETITE [None]
  - DEPRESSION [None]
  - FEELING COLD [None]
  - IMPAIRED WORK ABILITY [None]
  - INSOMNIA [None]
  - NAUSEA [None]
  - SOMNOLENCE [None]
  - THINKING ABNORMAL [None]
